FAERS Safety Report 4380449-6 (Version None)
Quarter: 2004Q2

REPORT INFORMATION
  Report Type: 
  Country: None (occurrence: None)
  Receive Date: 20040614
  Receipt Date: 20040604
  Transmission Date: 20050107
  Serious: Yes (Disabling)
  Sender: FDA-Public Use
  Company Number: 2004-03-1598

PATIENT
  Age: 48 Year
  Sex: Male

DRUGS (3)
  1. REBETOL [Suspect]
     Indication: HEPATITIS C
     Dosage: ORAL
     Route: 048
     Dates: start: 20030108, end: 20030826
  2. PEGASYS (PEGYLATED INTERFERON ALFA-2A) INJECTABLE SOLUTION [Suspect]
     Indication: HEPATITIS C
     Dosage: SUBCUTANEOUS
     Route: 058
     Dates: start: 20030108, end: 20030826
  3. CITALOPRAM [Suspect]
     Indication: DEPRESSION
     Dosage: 10 MG QD
     Dates: start: 20030108

REACTIONS (17)
  - ALOPECIA [None]
  - BLINDNESS UNILATERAL [None]
  - DRY SKIN [None]
  - DYSURIA [None]
  - FATIGUE [None]
  - HEPATIC ENZYME INCREASED [None]
  - HEPATITIS C VIRUS [None]
  - HYPERTENSION [None]
  - MACULAR OEDEMA [None]
  - MIGRAINE [None]
  - RASH PRURITIC [None]
  - RETINAL EXUDATES [None]
  - RETINAL HAEMORRHAGE [None]
  - RETINOPATHY [None]
  - SEBORRHOEIC DERMATITIS [None]
  - VIRAL LOAD INCREASED [None]
  - VISION BLURRED [None]
